FAERS Safety Report 13246695 (Version 1)
Quarter: 2017Q1

REPORT INFORMATION
  Report Type: Spontaneous
  Country: US (occurrence: US)
  Receive Date: 20170217
  Receipt Date: 20170217
  Transmission Date: 20170428
  Serious: No
  Sender: FDA-Public Use
  Company Number: US-OTSUKA-2016_025477

PATIENT
  Age: 13 Year
  Sex: Female

DRUGS (8)
  1. DOXORUBICIN [Concomitant]
     Active Substance: DOXORUBICIN
     Indication: EWING^S SARCOMA
     Dosage: UNK
     Route: 065
  2. IFOSFAMIDE. [Concomitant]
     Active Substance: IFOSFAMIDE
     Indication: EWING^S SARCOMA
     Dosage: UNK
     Route: 065
  3. ETOPOSIDE. [Concomitant]
     Active Substance: ETOPOSIDE
     Indication: EWING^S SARCOMA
     Dosage: UNK
     Route: 065
  4. MELPHALAN [Suspect]
     Active Substance: MELPHALAN
     Indication: STEM CELL TRANSPLANT
     Dosage: UNK
     Route: 065
  5. DACTINOMYCIN [Concomitant]
     Active Substance: DACTINOMYCIN
     Indication: EWING^S SARCOMA
     Dosage: UNK
     Route: 065
  6. VINCRISTINE [Concomitant]
     Active Substance: VINCRISTINE
     Indication: EWING^S SARCOMA
     Dosage: UNK
     Route: 065
  7. BUSULFEX [Suspect]
     Active Substance: BUSULFAN
     Indication: STEM CELL TRANSPLANT
     Dosage: UNK
     Route: 065
  8. FIGITUMUMAB [Concomitant]
     Active Substance: FIGITUMUMAB
     Indication: DISEASE RECURRENCE
     Dosage: 20 MG/KG, (EVERY 3 WEEKS)
     Route: 042

REACTIONS (2)
  - Off label use [Unknown]
  - Drug administration error [Unknown]
